FAERS Safety Report 22613272 (Version 1)
Quarter: 2023Q2

REPORT INFORMATION
  Report Type: Spontaneous
  Country: US (occurrence: US)
  Receive Date: 20230619
  Receipt Date: 20230619
  Transmission Date: 20230721
  Serious: Yes (Other)
  Sender: FDA-Public Use
  Company Number: US-BRISTOL-MYERS SQUIBB COMPANY-2023-084560

PATIENT
  Age: 57 Year
  Sex: Male

DRUGS (1)
  1. SOTYKTU [Suspect]
     Active Substance: DEUCRAVACITINIB
     Indication: Product used for unknown indication
     Dosage: NOVEMBER/DECEMBER 2022
     Route: 048

REACTIONS (2)
  - Spontaneous penile erection [Recovering/Resolving]
  - Psoriatic arthropathy [Recovering/Resolving]
